FAERS Safety Report 11185364 (Version 1)
Quarter: 2015Q2

REPORT INFORMATION
  Report Type: Spontaneous
  Country: US (occurrence: US)
  Receive Date: 20150612
  Receipt Date: 20150612
  Transmission Date: 20150821
  Serious: No
  Sender: FDA-Public Use
  Company Number: US-HORIZON-RAV-0026-2015

PATIENT
  Age: 22 Year
  Sex: Male

DRUGS (1)
  1. RAVICTI [Suspect]
     Active Substance: GLYCEROL PHENYLBUTYRATE
     Indication: ORNITHINE TRANSCARBAMOYLASE DEFICIENCY
     Dates: start: 20130423

REACTIONS (3)
  - Abdominal discomfort [Unknown]
  - Nasopharyngitis [Unknown]
  - Diarrhoea [Unknown]
